FAERS Safety Report 5033203-6 (Version None)
Quarter: 2006Q2

REPORT INFORMATION
  Report Type: 
  Country: None (occurrence: None)
  Receive Date: 20060620
  Receipt Date: 20060608
  Transmission Date: 20061013
  Serious: Yes (Death, Hospitalization)
  Sender: FDA-Public Use
  Company Number: 163-21880-06060319

PATIENT
  Age: 48 Year
  Sex: Male

DRUGS (2)
  1. REVLIMID [Suspect]
     Indication: MULTIPLE MYELOMA
     Dosage: 5 MG, DAILY, ORAL
     Route: 048
     Dates: start: 20060303, end: 20060324
  2. REVLIMID [Suspect]
     Indication: MULTIPLE MYELOMA
     Dosage: 5 MG, DAILY, ORAL
     Route: 048
     Dates: start: 20060403, end: 20060419

REACTIONS (4)
  - MALIGNANT NEOPLASM PROGRESSION [None]
  - METASTASIS [None]
  - MULTIPLE MYELOMA [None]
  - PLATELET COUNT DECREASED [None]
